FAERS Safety Report 4445357-0 (Version None)
Quarter: 2004Q3

REPORT INFORMATION
  Report Type: 
  Country: None (occurrence: None)
  Receive Date: 20040907
  Receipt Date: 20040819
  Transmission Date: 20050211
  Serious: Yes (Life-Threatening, Hospitalization)
  Sender: FDA-Public Use
  Company Number: DSA_24885_2004

PATIENT
  Age: 70 Year
  Sex: Female

DRUGS (9)
  1. DILZEM ^ELAN^ [Suspect]
     Dosage: 300 MG Q DAY PO
     Route: 048
  2. NEUROTOL - SLOW RELEASE [Suspect]
     Indication: CONVULSION
     Dosage: 200 MG Q DAY PO
     Route: 048
     Dates: start: 20040204, end: 20040402
  3. PURESIS [Suspect]
     Dosage: DF PO
     Route: 048
  4. ATACAND [Suspect]
     Dosage: 16 MG Q DAY PO
     Route: 048
  5. APURIN [Suspect]
     Dosage: 300 MG Q DAY PO
     Route: 048
  6. DETRUSITOL [Concomitant]
  7. DUREKAL [Concomitant]
  8. THYROXIN [Concomitant]
  9. PRIMASPAN [Concomitant]

REACTIONS (3)
  - ANTICONVULSANT DRUG LEVEL INCREASED [None]
  - B-LYMPHOCYTE COUNT DECREASED [None]
  - NEUTROPENIA [None]
